FAERS Safety Report 18880517 (Version 1)
Quarter: 2021Q1

REPORT INFORMATION
  Report Type: Spontaneous
  Country: US (occurrence: US)
  Receive Date: 20210212
  Receipt Date: 20210212
  Transmission Date: 20210420
  Serious: Yes (Life-Threatening, Hospitalization, Other)
  Sender: FDA-Public Use
  Company Number: US-ASTRAZENECA-2021A045512

PATIENT
  Age: 29159 Day
  Sex: Male
  Weight: 121.1 kg

DRUGS (2)
  1. BRILINTA [Suspect]
     Active Substance: TICAGRELOR
     Indication: MYOCARDIAL INFARCTION
     Dosage: 40.0MG AS REQUIRED
     Route: 048
     Dates: start: 20191019, end: 20200628
  2. BRILINTA [Suspect]
     Active Substance: TICAGRELOR
     Indication: STENT PLACEMENT
     Dosage: 40.0MG AS REQUIRED
     Route: 048
     Dates: start: 20191019, end: 20200628

REACTIONS (4)
  - Haemoglobin decreased [Recovering/Resolving]
  - Hallucination [Unknown]
  - Dyspnoea [Unknown]
  - Gait disturbance [Unknown]

NARRATIVE: CASE EVENT DATE: 20200610
